FAERS Safety Report 17200792 (Version 1)
Quarter: 2020Q1

REPORT INFORMATION
  Report Type: Spontaneous
  Country: US (occurrence: US)
  Receive Date: 20191224
  Receipt Date: 20191224
  Transmission Date: 20200409
  Serious: Yes (Other)
  Sender: FDA-Public Use
  Company Number: None

PATIENT
  Age: 59 Year
  Sex: Female

DRUGS (5)
  1. REPATHA [Suspect]
     Active Substance: EVOLOCUMAB
     Indication: HYPERCHOLESTEROLAEMIA
     Route: 058
  2. PREDNISONE. [Suspect]
     Active Substance: PREDNISONE
  3. ESCITALOPRAM [Suspect]
     Active Substance: ESCITALOPRAM OXALATE
  4. DIAZEPAM. [Suspect]
     Active Substance: DIAZEPAM
  5. BUPROPION XL [Suspect]
     Active Substance: BUPROPION

REACTIONS (1)
  - Sudden hearing loss [None]
